FAERS Safety Report 4314872-2 (Version None)
Quarter: 2004Q1

REPORT INFORMATION
  Report Type: 
  Country: None (occurrence: None)
  Receive Date: 20040310
  Receipt Date: 20010618
  Transmission Date: 20041129
  Serious: Yes (Other)
  Sender: FDA-Public Use
  Company Number: WAES 01061623

PATIENT
  Age: 81 Year
  Sex: Female

DRUGS (6)
  1. CARDIZEM [Concomitant]
  2. ACULAR [Concomitant]
     Route: 047
  3. SYNTHROID [Concomitant]
  4. TIMOPTIC [Suspect]
     Indication: GLAUCOMA
     Route: 047
     Dates: start: 19990101
  5. TIMOPTIC [Suspect]
     Route: 047
     Dates: start: 20040225, end: 20040226
  6. AMBIEN [Concomitant]

REACTIONS (12)
  - CONJUNCTIVAL HYPERAEMIA [None]
  - DEPOSIT EYE [None]
  - DRY SKIN [None]
  - ERYTHEMA [None]
  - EYE DISORDER [None]
  - EYE IRRITATION [None]
  - EYE PRURITUS [None]
  - EYE REDNESS [None]
  - EYE SWELLING [None]
  - EYELID OEDEMA [None]
  - PERIORBITAL OEDEMA [None]
  - SKIN WARM [None]
